FAERS Safety Report 5512920-5 (Version None)
Quarter: 2007Q4

REPORT INFORMATION
  Report Type: 
  Country: None (occurrence: None)
  Receive Date: 20071112
  Receipt Date: 20071102
  Transmission Date: 20080405
  Serious: Yes (Life-Threatening)
  Sender: FDA-Public Use
  Company Number: B0494841A

PATIENT
  Age: 79 Year
  Sex: Male

DRUGS (5)
  1. ZINNAT INJECTABLE [Suspect]
     Indication: ANTIBIOTIC PROPHYLAXIS
     Dosage: 1INJ SINGLE DOSE
     Route: 042
     Dates: start: 20070110, end: 20070110
  2. ACUPAN [Suspect]
     Route: 065
  3. PROFENID [Suspect]
     Dosage: 300MG PER DAY
     Route: 042
     Dates: start: 20070110, end: 20070111
  4. VOLUVEN [Suspect]
     Route: 042
     Dates: start: 20070110, end: 20070110
  5. MORPHINE [Suspect]
     Route: 042
     Dates: start: 20070110

REACTIONS (3)
  - ANGIOEDEMA [None]
  - FACE OEDEMA [None]
  - PALATAL OEDEMA [None]
